FAERS Safety Report 4854368-2 (Version None)
Quarter: 2005Q4

REPORT INFORMATION
  Report Type: 
  Country: None (occurrence: None)
  Receive Date: 20051213
  Receipt Date: 20051130
  Transmission Date: 20060501
  Serious: Yes (Death, Hospitalization)
  Sender: FDA-Public Use
  Company Number: 2005BI021506

PATIENT
  Sex: Male

DRUGS (7)
  1. ZEVALIN [Suspect]
     Indication: NON-HODGKIN'S LYMPHOMA
     Dosage: IV
     Route: 042
  2. ZEVALIN [Suspect]
     Indication: NON-HODGKIN'S LYMPHOMA
     Dosage: IV
     Route: 042
  3. RITUXIMAB [Concomitant]
  4. AMLOR [Concomitant]
  5. FOLAVIT [Concomitant]
  6. DUPHALAC [Concomitant]
  7. EMCONCOR/BEL [Concomitant]

REACTIONS (1)
  - NO ADVERSE DRUG EFFECT [None]
